FAERS Safety Report 7362720-9 (Version None)
Quarter: 2011Q1

REPORT INFORMATION
  Report Type: 
  Country: None (occurrence: None)
  Receive Date: 20110321
  Receipt Date: 20110310
  Transmission Date: 20110831
  Serious: Yes (Hospitalization)
  Sender: FDA-Public Use
  Company Number: US-BIOGENIDEC-2011BI009201

PATIENT
  Age: 61 Year
  Sex: Female

DRUGS (2)
  1. AVONEX [Suspect]
     Route: 030
  2. AVONEX [Suspect]
     Indication: MULTIPLE SCLEROSIS
     Route: 030
     Dates: start: 20000414

REACTIONS (6)
  - PARAESTHESIA [None]
  - CALCULUS BLADDER [None]
  - HYPOAESTHESIA [None]
  - BLADDER CANCER STAGE II [None]
  - URINARY TRACT INFECTION [None]
  - HALLUCINATION [None]
